FAERS Safety Report 6444804-2 (Version None)
Quarter: 2009Q4

REPORT INFORMATION
  Report Type: 
  Country: None (occurrence: None)
  Receive Date: 20091116
  Receipt Date: 20091116
  Transmission Date: 20100525
  Serious: No
  Sender: FDA-Public Use
  Company Number: None

PATIENT
  Sex: Male
  Weight: 90.7194 kg

DRUGS (1)
  1. HYDRALAZINE HCL [Suspect]
     Indication: HYPERTENSION
     Dosage: 25MG TWICE DAILY
     Dates: start: 20091020

REACTIONS (3)
  - CHEST PAIN [None]
  - DIARRHOEA [None]
  - HEART RATE INCREASED [None]
